FAERS Safety Report 9229087 (Version 1)
Quarter: 2013Q2

REPORT INFORMATION
  Report Type: Spontaneous
  Country: CH (occurrence: CH)
  Receive Date: 20130412
  Receipt Date: 20130412
  Transmission Date: 20140414
  Serious: Yes (Hospitalization, Other)
  Sender: FDA-Public Use
  Company Number: CH-ASTRAZENECA-2013SE22573

PATIENT
  Age: 76 Year
  Sex: Female

DRUGS (14)
  1. ESOMEP MUPS [Suspect]
     Indication: GASTRIC ULCER
     Route: 048
  2. TEBOKAN [Concomitant]
     Route: 048
  3. ASPIRIN CARDIO [Concomitant]
     Route: 048
  4. ELTROXIN [Concomitant]
     Route: 048
  5. AMLODIPIN-MEPHA [Concomitant]
     Route: 048
  6. DAFALGAN [Concomitant]
     Route: 048
  7. SIRDALUD [Concomitant]
     Route: 048
  8. KENDURAL [Concomitant]
     Route: 048
  9. DIPIPERON [Concomitant]
     Route: 048
  10. TEMESTA [Concomitant]
     Route: 048
  11. ZOLPIDEM [Concomitant]
     Route: 048
  12. CALCIMAGON D3 [Concomitant]
     Route: 048
  13. MYRTAVEN [Concomitant]
     Route: 048
  14. ESTRADOT [Concomitant]
     Route: 062

REACTIONS (2)
  - Systemic lupus erythematosus [Recovered/Resolved]
  - Gastrointestinal disorder [None]
